FAERS Safety Report 19912452 (Version 1)
Quarter: 2021Q4

REPORT INFORMATION
  Report Type: Spontaneous
  Country: FR (occurrence: FR)
  Receive Date: 20211004
  Receipt Date: 20211004
  Transmission Date: 20220303
  Serious: Yes (Hospitalization, Other)
  Sender: FDA-Public Use
  Company Number: FR-INTAS SPAIN-000333

PATIENT
  Age: 23 Month
  Sex: Male
  Weight: 12.9 kg

DRUGS (2)
  1. APIXABAN [Suspect]
     Active Substance: APIXABAN
     Indication: Product used for unknown indication
     Dosage: 40 MILLIGRAM, STRENGTH: 5 MG, INGESTED 8 PILLS
     Route: 065
  2. DIGOXIN [Suspect]
     Active Substance: DIGOXIN
     Indication: Product used for unknown indication
     Dosage: 0.75 MILLIGRAM, STRENGTH: 0.25 MG, INGESTED 3 PILLS
     Route: 065

REACTIONS (4)
  - Drug level increased [Recovered/Resolved]
  - Accidental exposure to product [Unknown]
  - Accidental overdose [Unknown]
  - Toxicity to various agents [Unknown]
